FAERS Safety Report 23634972 (Version 3)
Quarter: 2024Q2

REPORT INFORMATION
  Report Type: Report from Study
  Country: BR (occurrence: BR)
  Receive Date: 20240315
  Receipt Date: 20240627
  Transmission Date: 20240716
  Serious: Yes (Hospitalization, Other)
  Sender: FDA-Public Use
  Company Number: BR-002147023-NVSC2022BR029897

PATIENT
  Age: 62 Year
  Sex: Male
  Weight: 65 kg

DRUGS (12)
  1. ENALAPRIL [Suspect]
     Active Substance: ENALAPRIL
     Dosage: 2.5 UNK
     Route: 048
     Dates: end: 20220131
  2. ENALAPRIL [Suspect]
     Active Substance: ENALAPRIL
     Indication: Chagas^ cardiomyopathy
     Dosage: 5 UNK
     Route: 048
     Dates: start: 20211201, end: 20220127
  3. ALDACTONE [Concomitant]
     Active Substance: SPIRONOLACTONE
     Indication: Cardiac failure
     Dosage: 25 MG
     Route: 065
     Dates: start: 20151209
  4. AMIODARONE [Concomitant]
     Active Substance: AMIODARONE
     Indication: Arrhythmia
     Dosage: 200 MG
     Route: 065
     Dates: start: 20151209
  5. AMIODARONE HYDROCHLORIDE [Concomitant]
     Active Substance: AMIODARONE HYDROCHLORIDE
     Indication: Arrhythmia
     Dosage: 200 MG
     Route: 065
     Dates: start: 20151209
  6. CARVEDILOL [Concomitant]
     Active Substance: CARVEDILOL
     Indication: Cardiac failure
     Dosage: 50 MG
     Route: 065
     Dates: start: 20151209
  7. LASIX [Concomitant]
     Active Substance: FUROSEMIDE
     Indication: Cardiac failure
     Dosage: 80 MG
     Route: 065
     Dates: start: 20160630
  8. LEVOTHYROXINE [Concomitant]
     Active Substance: LEVOTHYROXINE\LEVOTHYROXINE SODIUM
     Indication: Hypothyroidism
     Dosage: 50 MG
     Route: 065
     Dates: start: 20191007
  9. WARFARIN SODIUM [Concomitant]
     Active Substance: WARFARIN SODIUM
     Indication: Thrombosis
     Dosage: 2.5 MG
     Route: 065
     Dates: start: 20151209
  10. PURAN [Concomitant]
     Active Substance: LEVOTHYROXINE SODIUM
     Indication: Hypothyroidism
     Dosage: 50 UG
     Route: 065
     Dates: start: 20191007
  11. SIMVASTATIN [Concomitant]
     Active Substance: SIMVASTATIN
     Indication: Dyslipidaemia
     Dosage: 20 MG
     Route: 065
     Dates: start: 20170126
  12. Vaslip [Concomitant]
     Indication: Dyslipidaemia
     Dosage: 20 MG
     Route: 065
     Dates: start: 20170126

REACTIONS (2)
  - Hypotension [Recovered/Resolved]
  - Pneumonia bacterial [Recovered/Resolved]

NARRATIVE: CASE EVENT DATE: 20220202
